FAERS Safety Report 25122078 (Version 1)
Quarter: 2025Q1

REPORT INFORMATION
  Report Type: Spontaneous
  Country: NL (occurrence: NL)
  Receive Date: 20250326
  Receipt Date: 20250326
  Transmission Date: 20250408
  Serious: Yes (Other)
  Sender: AUROBINDO
  Company Number: NL-ACTAVIS-2008B-07344

PATIENT
  Age: 48 Year
  Sex: Female

DRUGS (5)
  1. IMATINIB [Interacting]
     Active Substance: IMATINIB
     Indication: Acute lymphocytic leukaemia
     Dosage: 600 MILLIGRAM, ONCE A DAY
     Route: 065
  2. METHOTREXATE [Interacting]
     Active Substance: METHOTREXATE
     Indication: Acute lymphocytic leukaemia
     Route: 065
  3. CYTARABINE [Interacting]
     Active Substance: CYTARABINE
     Indication: Acute lymphocytic leukaemia
     Route: 042
  4. ETOPOSIDE [Interacting]
     Active Substance: ETOPOSIDE
     Indication: Acute lymphocytic leukaemia
     Route: 065
  5. LEUCOVORIN [Interacting]
     Active Substance: LEUCOVORIN\LEUCOVORIN CALCIUM
     Indication: Acute lymphocytic leukaemia
     Dosage: 30 MILLIGRAM, FOUR TIMES/DAY (30 MG, Q6H (30 MG EVERY 6 HR COMMENCING 24 HR AFTER MTX INFUSION))

REACTIONS (10)
  - Oedema peripheral [Recovered/Resolved]
  - Renal impairment [Unknown]
  - Weight increased [Unknown]
  - Ascites [Unknown]
  - Pleural effusion [Recovered/Resolved]
  - Stomatitis [Unknown]
  - Mucosal inflammation [Unknown]
  - Drug clearance decreased [Unknown]
  - Toxicity to various agents [Recovered/Resolved]
  - Drug interaction [Unknown]
